FAERS Safety Report 19907329 (Version 1)
Quarter: 2021Q3

REPORT INFORMATION
  Report Type: Spontaneous
  Country: US (occurrence: US)
  Receive Date: 20210930
  Receipt Date: 20210930
  Transmission Date: 20211014
  Serious: Yes (Death, Life-Threatening)
  Sender: FDA-Public Use
  Company Number: US-GE HEALTHCARE LIFE SCIENCES-2021CSU004847

PATIENT
  Age: 81 Year
  Sex: Male

DRUGS (6)
  1. OMNIPAQUE [Suspect]
     Active Substance: IOHEXOL
     Indication: ANGINA UNSTABLE
     Dosage: UNK, SINGLE
     Route: 013
     Dates: start: 2017, end: 2017
  2. METHYLPREDNISOLONE. [Concomitant]
     Active Substance: METHYLPREDNISOLONE
     Dosage: 125 MG AT 24, 12 AND ONE HOUR PRIOR TO THE PROCEDURE
     Route: 042
     Dates: start: 2017, end: 2017
  3. OMNIPAQUE [Suspect]
     Active Substance: IOHEXOL
     Indication: ANGIOGRAM
     Dosage: UNK, SINGLE
     Route: 013
     Dates: start: 2014, end: 2014
  4. DIPHENHYDRAMINE. [Concomitant]
     Active Substance: DIPHENHYDRAMINE
     Dosage: 50 MG AT 24, 12 AND ONE HOUR PRIOR TO THE PROCEDURE
     Route: 048
     Dates: start: 2017, end: 2017
  5. FAMOTIDINE. [Concomitant]
     Active Substance: FAMOTIDINE
     Dosage: 20 MG AT 24, 12 AND ONE HOUR PRIOR TO THE PROCEDURE
     Dates: start: 2017, end: 2017
  6. OMNIPAQUE [Suspect]
     Active Substance: IOHEXOL
     Indication: PERCUTANEOUS CORONARY INTERVENTION
     Dosage: UNK, SINGLE
     Route: 013
     Dates: start: 2015, end: 2015

REACTIONS (6)
  - Cardiac arrest [Fatal]
  - Hypotension [Recovered/Resolved]
  - Ventricular tachycardia [Recovered/Resolved]
  - Hypotension [Fatal]
  - Hypotension [Recovered/Resolved]
  - Circulatory collapse [Recovered/Resolved]

NARRATIVE: CASE EVENT DATE: 2014
